FAERS Safety Report 5052844-3 (Version None)
Quarter: 2006Q2

REPORT INFORMATION
  Report Type: 
  Country: None (occurrence: None)
  Receive Date: 20060629
  Receipt Date: 20060620
  Transmission Date: 20061013
  Serious: Yes (Other)
  Sender: FDA-Public Use
  Company Number: THYM-10973

PATIENT
  Age: 43 Year
  Sex: Male
  Weight: 88 kg

DRUGS (8)
  1. THYMOGLOBULIN [Suspect]
     Indication: RENAL TRANSPLANT
     Dosage: 150 MG ONCE IV
     Route: 042
     Dates: start: 20060608, end: 20060608
  2. THYMOGLOBULIN [Suspect]
     Indication: RENAL TRANSPLANT
     Dosage: 75 MG ONCE IV
     Route: 042
     Dates: start: 20060610, end: 20060610
  3. THYMOGLOBULIN [Suspect]
     Indication: RENAL TRANSPLANT
     Dosage: 75 MG ONCE IV
     Route: 042
     Dates: start: 20060612, end: 20060612
  4. CELLCEPT [Concomitant]
  5. PEPCID [Concomitant]
  6. ANCEF [Concomitant]
  7. MORPHINE [Concomitant]
  8. TRANDATE [Concomitant]

REACTIONS (2)
  - PYREXIA [None]
  - RASH [None]
